FAERS Safety Report 6806364-3 (Version None)
Quarter: 2010Q2

REPORT INFORMATION
  Report Type: 
  Country: None (occurrence: None)
  Receive Date: 20100629
  Receipt Date: 20100115
  Transmission Date: 20101027
  Serious: No
  Sender: FDA-Public Use
  Company Number: US-PFIZER INC-2008003729

PATIENT
  Sex: Male
  Weight: 113.4 kg

DRUGS (10)
  1. TIKOSYN [Suspect]
     Indication: ATRIAL FIBRILLATION
     Dosage: 500 UG, 2X/DAY
     Dates: start: 20070101
  2. PRAVACHOL [Concomitant]
  3. GLUCOPHAGE [Concomitant]
  4. DEMADEX [Concomitant]
  5. ZYRTEC [Concomitant]
  6. WARFARIN [Concomitant]
  7. NORVASC [Concomitant]
  8. ATACAND [Concomitant]
  9. SPIRONOLACTONE [Concomitant]
  10. ATENOLOL [Concomitant]

REACTIONS (4)
  - ATRIAL FIBRILLATION [None]
  - ELECTROCARDIOGRAM QT PROLONGED [None]
  - HEART RATE INCREASED [None]
  - SINUS ARRHYTHMIA [None]
